FAERS Safety Report 11825593 (Version 1)
Quarter: 2015Q4

REPORT INFORMATION
  Report Type: Spontaneous
  Country: US (occurrence: US)
  Receive Date: 20151211
  Receipt Date: 20151211
  Transmission Date: 20160305
  Serious: No
  Sender: FDA-Public Use
  Company Number: US-JNJFOC-20150622734

PATIENT
  Age: 75 Year
  Sex: Female

DRUGS (5)
  1. METOPROLOL [Concomitant]
     Active Substance: METOPROLOL
  2. IMBRUVICA [Suspect]
     Active Substance: IBRUTINIB
     Indication: CHRONIC LYMPHOCYTIC LEUKAEMIA
     Route: 048
     Dates: start: 20150410
  3. FUROSEMIDE. [Concomitant]
     Active Substance: FUROSEMIDE
  4. ALBUTEROL. [Concomitant]
     Active Substance: ALBUTEROL
  5. PREDNISONE. [Concomitant]
     Active Substance: PREDNISONE

REACTIONS (8)
  - Contusion [Recovering/Resolving]
  - Rash maculo-papular [Recovered/Resolved]
  - Urinary tract infection [Recovered/Resolved]
  - Dry skin [Not Recovered/Not Resolved]
  - Cystitis [Unknown]
  - Dysuria [Not Recovered/Not Resolved]
  - Haematuria [Recovered/Resolved]
  - Rash [Unknown]

NARRATIVE: CASE EVENT DATE: 2015
